FAERS Safety Report 8512171-6 (Version None)
Quarter: 2012Q3

REPORT INFORMATION
  Report Type: 
  Country: None (occurrence: None)
  Receive Date: 20120716
  Receipt Date: 20120705
  Transmission Date: 20120928
  Serious: Yes (Hospitalization)
  Sender: FDA-Public Use
  Company Number: JP-VERTEX PHARMACEUTICALS INC.-AE-2012-010046

PATIENT
  Age: 60 Year
  Sex: Female

DRUGS (8)
  1. PEGINTERFERON ALFA-2B [Concomitant]
     Indication: HEPATITIS C
     Route: 058
     Dates: start: 20120514
  2. RIBAVIRIN [Concomitant]
     Route: 048
     Dates: start: 20120514, end: 20120524
  3. RIBAVIRIN [Concomitant]
     Route: 048
     Dates: start: 20120604
  4. TELAVIC (TELAPREVIR) [Suspect]
     Indication: HEPATITIS C
     Route: 048
     Dates: start: 20120514, end: 20120524
  5. RABEPRAZOLE SODIUM [Concomitant]
     Route: 048
     Dates: start: 20120526
  6. URSO 250 [Concomitant]
     Route: 048
     Dates: end: 20120522
  7. TELAVIC (TELAPREVIR) [Suspect]
     Route: 048
     Dates: start: 20120524
  8. RIBAVIRIN [Concomitant]
     Route: 048
     Dates: start: 20120525, end: 20120603

REACTIONS (2)
  - DECREASED APPETITE [None]
  - VOMITING [None]
